FAERS Safety Report 21157920 (Version 2)
Quarter: 2023Q2

REPORT INFORMATION
  Report Type: Report from Study
  Country: BY (occurrence: BY)
  Receive Date: 20220801
  Receipt Date: 20230421
  Transmission Date: 20230722
  Serious: Yes (Life-Threatening, Hospitalization, Other)
  Sender: FDA-Public Use
  Company Number: BY-MYLANLABS-2022M1082417

PATIENT
  Age: 79 Year
  Sex: Male
  Weight: 57.3 kg

DRUGS (9)
  1. PRETOMANID [Suspect]
     Active Substance: PRETOMANID
     Indication: Antibiotic prophylaxis
     Dosage: 200 MILLIGRAM, QD
     Route: 048
     Dates: start: 20220621, end: 20220728
  2. BEDAQUILINE [Suspect]
     Active Substance: BEDAQUILINE
     Indication: Antibiotic prophylaxis
     Dosage: 200 MILLIGRAM, Q3W
     Route: 048
     Dates: start: 20220621, end: 20220728
  3. LINEZOLID [Suspect]
     Active Substance: LINEZOLID
     Indication: Antibiotic prophylaxis
     Dosage: 600 MILLIGRAM, QD
     Route: 048
     Dates: start: 20220621, end: 20220728
  4. MOXIFLOXACIN [Suspect]
     Active Substance: MOXIFLOXACIN
     Indication: Antibiotic prophylaxis
     Dosage: 400 MILLIGRAM, QD
     Route: 048
     Dates: start: 20220621, end: 20220714
  5. CLOFAZIMINE [Suspect]
     Active Substance: CLOFAZIMINE
     Indication: Antibiotic prophylaxis
     Dosage: 100 MILLIGRAM, QD
     Route: 048
     Dates: start: 20220714, end: 20220728
  6. ASPICARD [Concomitant]
     Indication: Cardiac failure
     Dosage: 75 MILLIGRAM, QD
     Route: 048
     Dates: start: 20220621
  7. PYRIDOXINE [Concomitant]
     Active Substance: PYRIDOXINE
     Indication: Prophylaxis
     Dosage: 100 MILLIGRAM, QD
     Route: 048
     Dates: start: 20220621
  8. Furagin [Concomitant]
     Indication: Prophylaxis
     Dosage: START DATE: 20-JUL-2022 50 MILLIGRAM, BID
     Route: 065
     Dates: end: 20220820
  9. FUROSEMIDE [Concomitant]
     Active Substance: FUROSEMIDE
     Indication: Urinary retention
     Dosage: START DATE: 20-JUL-2022 80 MILLIGRAM, QD
     Route: 065
     Dates: end: 20220724

REACTIONS (1)
  - Acute kidney injury [Recovered/Resolved]

NARRATIVE: CASE EVENT DATE: 20220718
